FAERS Safety Report 13525535 (Version 2)
Quarter: 2017Q3

REPORT INFORMATION
  Report Type: Spontaneous
  Country: US (occurrence: US)
  Receive Date: 20170508
  Receipt Date: 20170716
  Transmission Date: 20171127
  Serious: Yes (Hospitalization)
  Sender: FDA-Public Use
  Company Number: US-ASTRAZENECA-2017SE47482

PATIENT
  Sex: Male
  Weight: 65.3 kg

DRUGS (2)
  1. NEXIUM [Suspect]
     Active Substance: ESOMEPRAZOLE MAGNESIUM
     Indication: GASTROOESOPHAGEAL REFLUX DISEASE
     Dosage: GENERIC 40 MG TWO TIMES A DAY
     Route: 048
  2. NEXIUM [Suspect]
     Active Substance: ESOMEPRAZOLE MAGNESIUM
     Indication: GASTROOESOPHAGEAL REFLUX DISEASE
     Route: 048

REACTIONS (8)
  - Product use issue [Recovered/Resolved]
  - Drug ineffective [Unknown]
  - Angina pectoris [Recovered/Resolved]
  - Hiatus hernia [Unknown]
  - Oesophagitis [Unknown]
  - Product substitution issue [Unknown]
  - Upper gastrointestinal haemorrhage [Unknown]
  - Coronary artery disease [Unknown]
